FAERS Safety Report 4555929-0 (Version None)
Quarter: 2005Q1

REPORT INFORMATION
  Report Type: 
  Country: None (occurrence: None)
  Receive Date: 20050111
  Receipt Date: 20041005
  Transmission Date: 20050727
  Serious: No
  Sender: FDA-Public Use
  Company Number: 04P-163-0276184

PATIENT
  Sex: Male

DRUGS (2)
  1. NIMBEX [Suspect]
     Indication: INDUCTION OF ANAESTHESIA
  2. PROPOFOL [Concomitant]

REACTIONS (3)
  - BLOOD PRESSURE DECREASED [None]
  - BRONCHOSPASM [None]
  - URTICARIA [None]
